FAERS Safety Report 14666630 (Version 1)
Quarter: 2018Q1

REPORT INFORMATION
  Report Type: Spontaneous
  Country: FR (occurrence: FR)
  Receive Date: 20180322
  Receipt Date: 20180322
  Transmission Date: 20180509
  Serious: Yes (Other)
  Sender: FDA-Public Use
  Company Number: FR-MERCK KGAA-2044253

PATIENT
  Age: 39 Year
  Sex: Female

DRUGS (1)
  1. NOVOTHYROX [Suspect]
     Active Substance: LEVOTHYROXINE SODIUM
     Indication: PRODUCT USED FOR UNKNOWN INDICATION

REACTIONS (24)
  - Pulmonary infarction [None]
  - Weight increased [None]
  - Depression [None]
  - Muscle strain [Recovered/Resolved]
  - Chest pain [None]
  - Confusional state [None]
  - Tri-iodothyronine increased [None]
  - Vomiting [None]
  - Lung disorder [None]
  - Post-traumatic stress disorder [None]
  - Cough [None]
  - Thyroxine decreased [None]
  - Muscle spasms [None]
  - Alopecia [None]
  - Fatigue [None]
  - Irritability [None]
  - Blood thyroid stimulating hormone [None]
  - Pain [None]
  - Psychiatric symptom [None]
  - Partner stress [None]
  - Nausea [None]
  - Pruritus [None]
  - Loss of personal independence in daily activities [None]
  - Anti-thyroid antibody [None]

NARRATIVE: CASE EVENT DATE: 20170208
